FAERS Safety Report 11466999 (Version 2)
Quarter: 2015Q3

REPORT INFORMATION
  Report Type: Spontaneous
  Country: ES (occurrence: ES)
  Receive Date: 20150908
  Receipt Date: 20150930
  Transmission Date: 20151125
  Serious: Yes (Hospitalization, Disabling)
  Sender: FDA-Public Use
  Company Number: ES-ROCHE-1631242

PATIENT
  Age: 68 Year
  Sex: Female
  Weight: 59.1 kg

DRUGS (1)
  1. ROACTEMRA [Suspect]
     Active Substance: TOCILIZUMAB
     Indication: RHEUMATOID ARTHRITIS
     Route: 065
     Dates: start: 20150414, end: 20150706

REACTIONS (1)
  - Hodgkin^s disease nodular sclerosis [Not Recovered/Not Resolved]

NARRATIVE: CASE EVENT DATE: 20150817
